FAERS Safety Report 12893205 (Version 1)
Quarter: 2016Q4

REPORT INFORMATION
  Report Type: Spontaneous
  Country: US (occurrence: US)
  Receive Date: 20161028
  Receipt Date: 20161028
  Transmission Date: 20170207
  Serious: No
  Sender: FDA-Public Use
  Company Number: US-BAYER-2016-207283

PATIENT
  Age: 12 Year
  Sex: Female

DRUGS (1)
  1. MIRALAX [Suspect]
     Active Substance: POLYETHYLENE GLYCOL 3350
     Indication: CONSTIPATION
     Dosage: 1 DF CAPFUL, TID
     Route: 048

REACTIONS (4)
  - Accidental exposure to product by child [Not Recovered/Not Resolved]
  - Abdominal discomfort [None]
  - Product use issue [None]
  - Failure of child resistant mechanism for pharmaceutical product [None]

NARRATIVE: CASE EVENT DATE: 20161024
